FAERS Safety Report 8559975-1 (Version None)
Quarter: 2012Q3

REPORT INFORMATION
  Report Type: 
  Country: None (occurrence: None)
  Receive Date: 20120802
  Receipt Date: 20120720
  Transmission Date: 20120928
  Serious: Yes (Hospitalization)
  Sender: FDA-Public Use
  Company Number: IT-CELGENEUS-083-21880-12071994

PATIENT
  Sex: Male

DRUGS (3)
  1. REVLIMID [Suspect]
     Indication: MANTLE CELL LYMPHOMA
     Dosage: 25 MILLIGRAM
     Route: 048
     Dates: start: 20120503, end: 20120610
  2. STEROID [Suspect]
     Route: 065
  3. ANTIBIOTICS [Concomitant]
     Route: 065

REACTIONS (11)
  - ASCITES [None]
  - MANTLE CELL LYMPHOMA RECURRENT [None]
  - NEOPLASM PROGRESSION [None]
  - DIABETES MELLITUS [None]
  - ASTHENIA [None]
  - PLEURAL EFFUSION [None]
  - X-RAY GASTROINTESTINAL TRACT ABNORMAL [None]
  - DIARRHOEA HAEMORRHAGIC [None]
  - VOMITING [None]
  - DIABETIC KETOACIDOSIS [None]
  - DYSPNOEA [None]
